FAERS Safety Report 7584296-3 (Version None)
Quarter: 2011Q2

REPORT INFORMATION
  Report Type: 
  Country: None (occurrence: None)
  Receive Date: 20110630
  Receipt Date: 20110621
  Transmission Date: 20111010
  Serious: Yes (Hospitalization)
  Sender: FDA-Public Use
  Company Number: PHHY2011IT55496

PATIENT
  Sex: Female

DRUGS (3)
  1. GABAPENTIN [Suspect]
  2. FUROSEMIDE [Suspect]
  3. LORAZEPAM [Suspect]

REACTIONS (3)
  - BRADYKINESIA [None]
  - BRADYPHRENIA [None]
  - TACHYCARDIA [None]
